FAERS Safety Report 12434509 (Version 3)
Quarter: 2016Q2

REPORT INFORMATION
  Report Type: Report from Study
  Country: DE (occurrence: CL)
  Receive Date: 20160603
  Receipt Date: 20160620
  Transmission Date: 20160815
  Serious: Yes (Other)
  Sender: FDA-Public Use
  Company Number: DE-ACTELION-A-US2016-137221

PATIENT
  Age: 57 Year
  Sex: Female

DRUGS (11)
  1. NEO-SINTROM [Concomitant]
     Active Substance: ACENOCOUMAROL
  2. TEGRETOL [Concomitant]
     Active Substance: CARBAMAZEPINE
  3. PLAQUINOL [Concomitant]
     Active Substance: HYDROXYCHLOROQUINE SULFATE
  4. TRACLEER [Concomitant]
     Active Substance: BOSENTAN
  5. OXYGEN. [Concomitant]
     Active Substance: OXYGEN
  6. SPIRONOLACTONE. [Concomitant]
     Active Substance: SPIRONOLACTONE
  7. FUROSEMIDE. [Concomitant]
     Active Substance: FUROSEMIDE
  8. SILDENAFIL. [Concomitant]
     Active Substance: SILDENAFIL
  9. ASPIRINA [Concomitant]
     Active Substance: ASPIRIN
  10. SLOW-K [Concomitant]
     Active Substance: POTASSIUM CHLORIDE
  11. VENTAVIS [Suspect]
     Active Substance: ILOPROST
     Indication: PULMONARY HYPERTENSION
     Dosage: UNK, 8/D
     Route: 055
     Dates: start: 20140225

REACTIONS (4)
  - Vomiting [Recovering/Resolving]
  - Diarrhoea [Recovering/Resolving]
  - Rotavirus infection [Recovering/Resolving]
  - General physical condition [Recovering/Resolving]

NARRATIVE: CASE EVENT DATE: 20160526
